FAERS Safety Report 17304795 (Version 4)
Quarter: 2020Q1

REPORT INFORMATION
  Report Type: Report from Study
  Country: None (occurrence: BE)
  Receive Date: 20200122
  Receipt Date: 20200306
  Transmission Date: 20200409
  Serious: Yes (Death, Hospitalization)
  Sender: FDA-Public Use
  Company Number: BE-ABBVIE-20K-013-3240594-00

PATIENT
  Sex: Male

DRUGS (6)
  1. STALEVO 50 [Concomitant]
     Indication: PARKINSON^S DISEASE
     Dosage: FORM STRENGTH: 50MG/12.5MG/200MG
     Route: 048
  2. DUODOPA [Suspect]
     Active Substance: CARBIDOPA\LEVODOPA
     Indication: PARKINSON^S DISEASE
     Dosage: MD=1ML, CD=2.8ML/HR DURING 16HRS, ED=0.5ML
     Route: 050
     Dates: start: 20140324, end: 20140326
  3. DUODOPA [Suspect]
     Active Substance: CARBIDOPA\LEVODOPA
     Dosage: DOSES CONTINUOUSLY MONITORED AND ADAPTED
     Route: 050
     Dates: start: 20140326, end: 20190618
  4. DUODOPA [Suspect]
     Active Substance: CARBIDOPA\LEVODOPA
     Dosage: MD=0.8ML, CD=1.7ML/HR DURING 16HRS, ED=0.7ML
     Route: 050
     Dates: start: 20190618, end: 20200205
  5. DUODOPA [Suspect]
     Active Substance: CARBIDOPA\LEVODOPA
     Dosage: MD=0.8ML, CD=2ML/HR DURING 16HRS, ED=0.7ML
     Route: 050
     Dates: start: 20200205
  6. STALEVO 50 [Concomitant]
     Dosage: FORM STRENGTH: 50MG/12.5MG/200MG; RESCUE MEDICATION

REACTIONS (8)
  - General physical health deterioration [Not Recovered/Not Resolved]
  - Dystonia [Unknown]
  - Muscle rigidity [Unknown]
  - Decreased activity [Unknown]
  - Pneumonia [Recovered/Resolved]
  - Dysphagia [Recovering/Resolving]
  - Pneumonia [Fatal]
  - Lung disorder [Unknown]
